FAERS Safety Report 7473122-9 (Version None)
Quarter: 2011Q1

REPORT INFORMATION
  Report Type: 
  Country: None (occurrence: None)
  Receive Date: 20110302
  Receipt Date: 20101129
  Transmission Date: 20110831
  Serious: Yes (Other)
  Sender: FDA-Public Use
  Company Number: 163-21880-10120073

PATIENT
  Age: 60 Year
  Sex: Male

DRUGS (6)
  1. REVLIMID [Suspect]
     Indication: MULTIPLE MYELOMA
     Dosage: 25 MG, QD FOR 3 WEEKS ON THEN 1 OFF, PO
     Route: 048
     Dates: start: 20100901
  2. BACTRIM [Concomitant]
  3. PANTOPRAZOLE [Concomitant]
  4. LISINOPRIL [Concomitant]
  5. METFORMIN (METFORMIN) [Concomitant]
  6. GLIMEPIRIDE [Concomitant]

REACTIONS (2)
  - TREATMENT NONCOMPLIANCE [None]
  - THROMBOSIS [None]
